FAERS Safety Report 5050409-0 (Version None)
Quarter: 2006Q3

REPORT INFORMATION
  Report Type: 
  Country: None (occurrence: None)
  Receive Date: 20060707
  Receipt Date: 20060703
  Transmission Date: 20061208
  Serious: Yes (Death)
  Sender: FDA-Public Use
  Company Number: 200610364GDS

PATIENT
  Age: 69 Year
  Sex: Male
  Weight: 65 kg

DRUGS (6)
  1. SORAFENIB [Suspect]
     Indication: METASTATIC RENAL CELL CARCINOMA
     Dosage: 400 MG, BID, ORAL
     Route: 048
     Dates: start: 20051202, end: 20051215
  2. ISOSORBID MONONITRANS [Concomitant]
  3. METOPROLOL TARTRATE [Concomitant]
  4. ACETYLSALICYLIC ACID SRT [Concomitant]
  5. KETOPROFEN [Concomitant]
  6. TRAMADOL HCL [Concomitant]

REACTIONS (4)
  - DEHYDRATION [None]
  - METABOLIC DISORDER [None]
  - MULTI-ORGAN FAILURE [None]
  - RESPIRATORY FAILURE [None]
